FAERS Safety Report 7907062-5 (Version None)
Quarter: 2011Q4

REPORT INFORMATION
  Report Type: 
  Country: None (occurrence: None)
  Receive Date: 20111110
  Receipt Date: 20110927
  Transmission Date: 20120403
  Serious: No
  Sender: FDA-Public Use
  Company Number: US-ASTRAZENECA-2011SE50829

PATIENT
  Sex: Female

DRUGS (11)
  1. LISINOPRIL [Suspect]
     Route: 048
  2. TENORETIC 100 [Concomitant]
  3. PRAVASTATIN [Concomitant]
  4. VITAMIN D [Concomitant]
  5. TRAZODONE HCL [Concomitant]
  6. ASPIRIN [Concomitant]
  7. CYMBALTA [Concomitant]
  8. VITAMIN E [Concomitant]
  9. FISH OIL [Concomitant]
  10. NEXIUM [Concomitant]
  11. VITAMIN B COMPLEX CAP [Concomitant]

REACTIONS (1)
  - DRUG INTOLERANCE [None]
